FAERS Safety Report 8291391-2 (Version None)
Quarter: 2012Q2

REPORT INFORMATION
  Report Type: 
  Country: None (occurrence: None)
  Receive Date: 20120413
  Receipt Date: 20120404
  Transmission Date: 20120825
  Serious: Yes (Life-Threatening)
  Sender: FDA-Public Use
  Company Number: 2012SP019071

PATIENT

DRUGS (2)
  1. TEMODAR [Suspect]
     Indication: MALIGNANT MELANOMA
     Dosage: 150 MCG/M2
  2. E-7016 (OTHER MFR) [Suspect]
     Indication: MALIGNANT MELANOMA

REACTIONS (1)
  - HYPONATRAEMIA [None]
